FAERS Safety Report 17101373 (Version 1)
Quarter: 2019Q4

REPORT INFORMATION
  Report Type: Spontaneous
  Country: GB (occurrence: GB)
  Receive Date: 20191202
  Receipt Date: 20191202
  Transmission Date: 20200122
  Serious: Yes (Life-Threatening)
  Sender: FDA-Public Use
  Company Number: NVSC2019GB054001

PATIENT
  Age: 21 Year
  Sex: Female

DRUGS (1)
  1. CO-AMOXICLAV 1000 MG/200 MG POWDER FOR SOLUTION FOR INJECTION/INFUSION [Suspect]
     Active Substance: AMOXICILLIN\CLAVULANATE POTASSIUM
     Indication: PRODUCT USED FOR UNKNOWN INDICATION
     Dosage: 1.2 G, QD
     Route: 042
     Dates: start: 20190915, end: 20190915

REACTIONS (2)
  - Rash macular [Unknown]
  - Dyspnoea [Unknown]

NARRATIVE: CASE EVENT DATE: 20190915
